FAERS Safety Report 4342075-4 (Version None)
Quarter: 2004Q2

REPORT INFORMATION
  Report Type: 
  Country: None (occurrence: None)
  Receive Date: 20040420
  Receipt Date: 20040413
  Transmission Date: 20050107
  Serious: Yes (Hospitalization)
  Sender: FDA-Public Use
  Company Number: GB-MERCK-0404GBR00086

PATIENT
  Sex: Female

DRUGS (4)
  1. [THERAPY UNSPECIFIED] [Concomitant]
     Route: 065
  2. ZOCOR [Suspect]
     Route: 048
     Dates: start: 20030101, end: 20030101
  3. SIMVASTATIN [Suspect]
     Route: 048
     Dates: start: 20030101, end: 20040410
  4. SIMVASTATIN [Suspect]
     Route: 048
     Dates: start: 20040411

REACTIONS (1)
  - PERICARDITIS [None]
